FAERS Safety Report 7111697-X (Version None)
Quarter: 2010Q4

REPORT INFORMATION
  Report Type: 
  Country: None (occurrence: None)
  Receive Date: 20101118
  Receipt Date: 20101110
  Transmission Date: 20110411
  Serious: Yes (Life-Threatening, Hospitalization)
  Sender: FDA-Public Use
  Company Number: US-GILEAD-2010-0033281

PATIENT
  Sex: Male

DRUGS (1)
  1. LETAIRIS [Suspect]
     Indication: PULMONARY ARTERIAL HYPERTENSION
     Route: 048
     Dates: start: 20101011

REACTIONS (6)
  - DYSPNOEA [None]
  - FLUID RETENTION [None]
  - NASAL CONGESTION [None]
  - OEDEMA [None]
  - OEDEMA PERIPHERAL [None]
  - SYNCOPE [None]
